FAERS Safety Report 13579576 (Version 1)
Quarter: 2017Q2

REPORT INFORMATION
  Report Type: Spontaneous
  Country: US (occurrence: US)
  Receive Date: 20170525
  Receipt Date: 20170525
  Transmission Date: 20170830
  Serious: No
  Sender: FDA-Public Use
  Company Number: US-MYLANLABS-2016M1018709

PATIENT

DRUGS (1)
  1. ZOLPIDEM [Suspect]
     Active Substance: ZOLPIDEM\ZOLPIDEM TARTRATE
     Indication: INSOMNIA
     Dosage: UNK

REACTIONS (6)
  - Slow speech [Unknown]
  - Abnormal behaviour [Unknown]
  - Amnesia [Unknown]
  - Thinking abnormal [Unknown]
  - Judgement impaired [Unknown]
  - Social problem [Unknown]
